FAERS Safety Report 9158134 (Version 2)
Quarter: 2013Q4

REPORT INFORMATION
  Report Type: Report from Study
  Country: US (occurrence: US)
  Receive Date: 20130312
  Receipt Date: 20131030
  Transmission Date: 20140711
  Serious: Yes (Hospitalization)
  Sender: FDA-Public Use
  Company Number: US-GLAXOSMITHKLINE-Z0004684K

PATIENT
  Age: 67 Year
  Sex: Male
  Weight: 82 kg

DRUGS (6)
  1. PLACEBO [Suspect]
     Indication: CORONARY ARTERY DISEASE
     Route: 048
     Dates: start: 20090605, end: 20120624
  2. OXYCODONE [Suspect]
     Indication: PAIN
     Dosage: 5MG PER DAY
     Route: 048
     Dates: start: 201302, end: 20130303
  3. DICLOFENAC [Suspect]
     Indication: GOUT
     Dosage: 75MG TWICE PER DAY
     Route: 048
     Dates: start: 201302, end: 20130303
  4. NEURONTIN [Suspect]
     Indication: NEUROPATHY PERIPHERAL
     Dosage: 300MG THREE TIMES PER DAY
     Route: 048
     Dates: start: 201302, end: 20130303
  5. COLCHICINE [Suspect]
     Indication: GOUT
     Dosage: .6MG AS REQUIRED
     Route: 048
     Dates: start: 2012, end: 20130302
  6. ASPIRIN [Suspect]
     Indication: CORONARY ARTERY DISEASE
     Dosage: 81MG PER DAY
     Route: 048
     Dates: start: 20120409

REACTIONS (2)
  - Metabolic encephalopathy [Recovered/Resolved]
  - Renal failure chronic [Recovered/Resolved]
